FAERS Safety Report 6848442-9 (Version None)
Quarter: 2010Q3

REPORT INFORMATION
  Report Type: 
  Country: None (occurrence: None)
  Receive Date: 20100716
  Receipt Date: 20100701
  Transmission Date: 20110219
  Serious: Yes (Other)
  Sender: FDA-Public Use
  Company Number: IL-MERCK-1007ISR00029

PATIENT
  Age: 60 Year
  Sex: Female

DRUGS (1)
  1. ZETIA [Suspect]
     Route: 048

REACTIONS (1)
  - ANAPHYLACTIC SHOCK [None]
